FAERS Safety Report 17458726 (Version 1)
Quarter: 2020Q1

REPORT INFORMATION
  Report Type: Spontaneous
  Country: ES (occurrence: ES)
  Receive Date: 20200225
  Receipt Date: 20200225
  Transmission Date: 20200409
  Serious: Yes (Hospitalization)
  Sender: FDA-Public Use
  Company Number: ES-MYLANLABS-2020M1020064

PATIENT
  Age: 67 Year
  Sex: Female

DRUGS (6)
  1. METOTREXATO                        /00113801/ [Suspect]
     Active Substance: METHOTREXATE
     Indication: RHEUMATOID ARTHRITIS
     Dosage: 25 MG UNA VEZ A LA SEMANA
     Route: 048
     Dates: start: 20140113, end: 20140630
  2. BLEOMYCIN [Suspect]
     Active Substance: BLEOMYCIN SULFATE
     Indication: HODGKIN^S DISEASE
     Dosage: UNK
     Route: 042
     Dates: start: 2010, end: 2011
  3. DACARBAZINA [Suspect]
     Active Substance: DACARBAZINE
     Indication: HODGKIN^S DISEASE
     Dosage: UNK
     Route: 042
     Dates: start: 2010, end: 2011
  4. LEFLUNOMIDE. [Suspect]
     Active Substance: LEFLUNOMIDE
     Indication: RHEUMATOID ARTHRITIS
     Dosage: 20 MG / 24 H
     Route: 048
     Dates: start: 20140707, end: 20150207
  5. VINBLASTINA                        /00115801/ [Suspect]
     Active Substance: VINBLASTINE SULFATE
     Indication: HODGKIN^S DISEASE
     Dosage: UNK
     Route: 042
     Dates: start: 2010, end: 2011
  6. DOXORUBICIN [Suspect]
     Active Substance: DOXORUBICIN
     Indication: HODGKIN^S DISEASE
     Dosage: UNK
     Route: 041
     Dates: start: 2010, end: 2011

REACTIONS (1)
  - Myelodysplastic syndrome [Not Recovered/Not Resolved]

NARRATIVE: CASE EVENT DATE: 201502
